FAERS Safety Report 18106720 (Version 1)
Quarter: 2020Q3

REPORT INFORMATION
  Report Type: Spontaneous
  Country: FR (occurrence: FR)
  Receive Date: 20200803
  Receipt Date: 20200803
  Transmission Date: 20201103
  Serious: Yes (Other)
  Sender: FDA-Public Use
  Company Number: FR-GLAXOSMITHKLINE-FR2020GSK135927

PATIENT
  Age: 57 Year
  Sex: Female

DRUGS (1)
  1. ACITRETIN. [Suspect]
     Active Substance: ACITRETIN
     Indication: PITYRIASIS RUBRA PILARIS
     Dosage: 0.5 MG/KG, 1D

REACTIONS (10)
  - Hypotension [Recovered/Resolved]
  - General physical health deterioration [Recovered/Resolved]
  - Capillary leak syndrome [Recovered/Resolved]
  - Hypoalbuminaemia [Recovered/Resolved]
  - Oedema [Recovered/Resolved]
  - Weight increased [Recovered/Resolved]
  - Thirst [Recovered/Resolved]
  - Oliguria [Recovered/Resolved]
  - Haemoconcentration [Recovered/Resolved]
  - Hypogammaglobulinaemia [Recovered/Resolved]
